FAERS Safety Report 25891974 (Version 1)
Quarter: 2025Q4

REPORT INFORMATION
  Report Type: Spontaneous
  Country: US (occurrence: US)
  Receive Date: 20251007
  Receipt Date: 20251007
  Transmission Date: 20260118
  Serious: No
  Sender: MYLAN
  Company Number: US-MYLANLABS-2025M1079170

PATIENT
  Sex: Female

DRUGS (16)
  1. ESTRADIOL TRANSDERMAL SYSTEM [Suspect]
     Active Substance: ESTRADIOL
     Indication: Hot flush
     Dosage: 0.05 MILLIGRAM
  2. ESTRADIOL TRANSDERMAL SYSTEM [Suspect]
     Active Substance: ESTRADIOL
     Indication: Night sweats
     Dosage: UNK
  3. ESTRADIOL TRANSDERMAL SYSTEM [Suspect]
     Active Substance: ESTRADIOL
     Indication: Headache
  4. ESTRADIOL TRANSDERMAL SYSTEM [Suspect]
     Active Substance: ESTRADIOL
     Indication: Insomnia
  5. ESTROGENS [Suspect]
     Active Substance: ESTROGENS
     Indication: Hot flush
     Dosage: UNK
  6. ESTROGENS [Suspect]
     Active Substance: ESTROGENS
     Indication: Night sweats
  7. ESTROGENS [Suspect]
     Active Substance: ESTROGENS
     Indication: Headache
  8. ESTROGENS [Suspect]
     Active Substance: ESTROGENS
     Indication: Insomnia
  9. ESTROGENS [Suspect]
     Active Substance: ESTROGENS
     Indication: Hot flush
     Dosage: UNK
  10. ESTROGENS [Suspect]
     Active Substance: ESTROGENS
     Indication: Night sweats
  11. ESTROGENS [Suspect]
     Active Substance: ESTROGENS
     Indication: Headache
  12. ESTROGENS [Suspect]
     Active Substance: ESTROGENS
     Indication: Insomnia
  13. COMBIPATCH [Concomitant]
     Active Substance: ESTRADIOL\NORETHINDRONE ACETATE
     Indication: Hot flush
     Dosage: 0.05/0.14 MILLIGRAM, BIWEEKLY (TWICE A WEEK)
  14. COMBIPATCH [Concomitant]
     Active Substance: ESTRADIOL\NORETHINDRONE ACETATE
     Indication: Night sweats
  15. COMBIPATCH [Concomitant]
     Active Substance: ESTRADIOL\NORETHINDRONE ACETATE
     Indication: Headache
  16. COMBIPATCH [Concomitant]
     Active Substance: ESTRADIOL\NORETHINDRONE ACETATE
     Indication: Insomnia

REACTIONS (5)
  - Hot flush [Not Recovered/Not Resolved]
  - Night sweats [Not Recovered/Not Resolved]
  - Withdrawal syndrome [Unknown]
  - Product dose omission issue [Unknown]
  - Drug ineffective [Unknown]
